FAERS Safety Report 11432436 (Version 4)
Quarter: 2016Q1

REPORT INFORMATION
  Report Type: Spontaneous
  Country: JP (occurrence: JP)
  Receive Date: 20150828
  Receipt Date: 20160123
  Transmission Date: 20160525
  Serious: Yes (Hospitalization, Other)
  Sender: FDA-Public Use
  Company Number: JP-AMGEN-JPNOT2015087510

PATIENT
  Age: 69 Year
  Sex: Male
  Weight: 55 kg

DRUGS (14)
  1. LOPERAMIDE [Concomitant]
     Active Substance: LOPERAMIDE
     Dosage: UNK
     Route: 048
  2. FOLIAMIN [Concomitant]
     Active Substance: FOLIC ACID
     Dosage: UNK
     Route: 048
  3. ALIMTA [Concomitant]
     Active Substance: PEMETREXED DISODIUM
     Dosage: 400 MG/M2, UNK
     Route: 041
     Dates: start: 201409, end: 201507
  4. RANMARK [Suspect]
     Active Substance: DENOSUMAB
     Indication: METASTASES TO BONE
     Dosage: 120 MG, UNK
     Route: 058
     Dates: start: 20140912, end: 20150731
  5. AMLODIPINE [Concomitant]
     Active Substance: AMLODIPINE BESYLATE
     Dosage: UNK
     Route: 048
  6. DENOTAS [Concomitant]
     Active Substance: CALCIUM CARBONATE\CHOLECALCIFEROL\MAGNESIUM CARBONATE
     Dosage: UNK
     Route: 048
  7. LOXONIN [Concomitant]
     Active Substance: LOXOPROFEN SODIUM
     Dosage: 60 MG, UNK
     Route: 048
  8. DECADRON [Concomitant]
     Active Substance: DEXAMETHASONE
     Dosage: 8.25 MG, QD
     Route: 041
     Dates: start: 20140705, end: 20140705
  9. FERROUS CITRATE NA [Concomitant]
     Dosage: UNK
     Route: 048
  10. LANSOPRAZOLE. [Concomitant]
     Active Substance: LANSOPRAZOLE
     Dosage: UNK
     Route: 048
  11. RIKKUNSHITO                        /08041001/ [Concomitant]
     Active Substance: HERBALS
     Dosage: UNK
     Route: 048
  12. TOKIINSHI [Concomitant]
     Dosage: UNK
     Route: 048
  13. AVASTIN [Concomitant]
     Active Substance: BEVACIZUMAB
     Dosage: 15 MG/KG, UNK
     Route: 041
     Dates: start: 201409, end: 201507
  14. GLUCONSAN K [Concomitant]
     Dosage: UNK
     Route: 048

REACTIONS (2)
  - Osteonecrosis of jaw [Not Recovered/Not Resolved]
  - Abscess neck [Not Recovered/Not Resolved]

NARRATIVE: CASE EVENT DATE: 20150804
